FAERS Safety Report 7990633-8 (Version None)
Quarter: 2011Q4

REPORT INFORMATION
  Report Type: 
  Country: None (occurrence: None)
  Receive Date: 20111219
  Receipt Date: 20110819
  Transmission Date: 20120403
  Serious: No
  Sender: FDA-Public Use
  Company Number: US-ASTRAZENECA-2011SE50170

PATIENT
  Age: 48 Year
  Sex: Female
  Weight: 77.6 kg

DRUGS (5)
  1. CRESTOR [Suspect]
     Indication: BLOOD CHOLESTEROL INCREASED
     Route: 048
     Dates: start: 20110801
  2. MICRONOR [Concomitant]
     Indication: ORAL CONTRACEPTION
  3. ALLEGRA [Concomitant]
     Indication: SEASONAL ALLERGY
  4. NAPROXEN [Concomitant]
     Indication: ARTHRITIS
  5. PREVACID [Concomitant]
     Indication: GASTROOESOPHAGEAL REFLUX DISEASE

REACTIONS (3)
  - OROPHARYNGEAL PAIN [None]
  - CONSTIPATION [None]
  - SINUS DISORDER [None]
